FAERS Safety Report 9263015 (Version 2)
Quarter: 2013Q2

REPORT INFORMATION
  Report Type: Spontaneous
  Country: BR (occurrence: BR)
  Receive Date: 20130430
  Receipt Date: 20130626
  Transmission Date: 20140414
  Serious: Yes (Death, Hospitalization, Other)
  Sender: FDA-Public Use
  Company Number: BR-AMGEN-BRASP2013029668

PATIENT
  Age: 85 Year
  Sex: Male
  Weight: 37 kg

DRUGS (1)
  1. ENBREL [Suspect]
     Indication: PSORIASIS
     Dosage: 50 MG, 1X/WEEK
     Route: 058
     Dates: start: 200903, end: 20100202

REACTIONS (5)
  - Death [Fatal]
  - Feeling abnormal [Unknown]
  - Feeding disorder [Unknown]
  - Malnutrition [Unknown]
  - Weight decreased [Unknown]
